FAERS Safety Report 8087197-X (Version None)
Quarter: 2012Q1

REPORT INFORMATION
  Report Type: 
  Country: None (occurrence: None)
  Receive Date: 20120128
  Receipt Date: 20110426
  Transmission Date: 20120608
  Serious: No
  Sender: FDA-Public Use
  Company Number: US-ABBOTT-11P-163-0722021-00

PATIENT
  Sex: Female
  Weight: 78.088 kg

DRUGS (11)
  1. HYDROCHLOROTHIAZIDE [Concomitant]
     Indication: HYPERTENSION
  2. PRAVASTATIN [Concomitant]
     Indication: BLOOD CHOLESTEROL INCREASED
  3. CALTRATE [Concomitant]
     Indication: MINERAL SUPPLEMENTATION
  4. MULTI-VITAMIN [Concomitant]
     Indication: VITAMIN SUPPLEMENTATION
  5. NORVASC [Concomitant]
     Indication: HYPERTENSION
  6. HUMIRA [Suspect]
     Indication: RHEUMATOID ARTHRITIS
  7. AZATHIOPRINE [Concomitant]
     Indication: CROHN'S DISEASE
  8. HUMIRA [Suspect]
     Indication: CROHN'S DISEASE
     Dates: start: 20100501
  9. ASPIRIN [Concomitant]
     Indication: PROPHYLAXIS
  10. PLAQUENIL [Concomitant]
     Indication: RHEUMATOID ARTHRITIS
  11. FISH OIL [Concomitant]
     Indication: MEDICAL DIET

REACTIONS (2)
  - RESPIRATORY TRACT CONGESTION [None]
  - COUGH [None]
